FAERS Safety Report 7173532-3 (Version None)
Quarter: 2010Q4

REPORT INFORMATION
  Report Type: 
  Country: None (occurrence: None)
  Receive Date: 20101215
  Receipt Date: 20101215
  Transmission Date: 20110411
  Serious: Yes (Hospitalization)
  Sender: FDA-Public Use
  Company Number: None

PATIENT
  Age: 74 Year
  Sex: Female
  Weight: 106.5953 kg

DRUGS (1)
  1. ACETAMINOPHEN W/ PROPOXYPHENE HCL [Suspect]
     Indication: PROCEDURAL PAIN
     Dosage: 1 TO 2 TABLETS EVERY 6 HRS.
     Dates: start: 20100802, end: 20100805

REACTIONS (1)
  - ATRIAL FIBRILLATION [None]
